FAERS Safety Report 23870986 (Version 1)
Quarter: 2024Q2

REPORT INFORMATION
  Report Type: Spontaneous
  Country: MY (occurrence: MY)
  Receive Date: 20240518
  Receipt Date: 20240518
  Transmission Date: 20240715
  Serious: Yes (Other)
  Sender: FDA-Public Use
  Company Number: MY-JNJFOC-20240534591

PATIENT
  Weight: 86.2 kg

DRUGS (1)
  1. DARZALEX [Suspect]
     Active Substance: DARATUMUMAB
     Indication: Product used for unknown indication
     Dosage: 17 MG/KG
     Route: 065
     Dates: start: 20220224, end: 20230907

REACTIONS (2)
  - Intentional overdose [Unknown]
  - Overweight [Unknown]
